FAERS Safety Report 6856996-1 (Version None)
Quarter: 2010Q3

REPORT INFORMATION
  Report Type: 
  Country: None (occurrence: None)
  Receive Date: 20100719
  Receipt Date: 20100712
  Transmission Date: 20110219
  Serious: Yes (Death)
  Sender: FDA-Public Use
  Company Number: A0867303A

PATIENT
  Age: 55 Year
  Sex: Male

DRUGS (3)
  1. ZOFRAN [Suspect]
     Indication: PRODUCT USED FOR UNKNOWN INDICATION
     Dosage: 8MG UNKNOWN
     Route: 065
     Dates: start: 20100521
  2. CHEMOTHERAPY [Suspect]
  3. ALOXI [Concomitant]
     Route: 042
     Dates: start: 20100527

REACTIONS (4)
  - ADVERSE EVENT [None]
  - CHEMOTHERAPY [None]
  - NON-SMALL CELL LUNG CANCER [None]
  - ONCOLOGIC COMPLICATION [None]
